FAERS Safety Report 17801742 (Version 2)
Quarter: 2021Q2

REPORT INFORMATION
  Report Type: Spontaneous
  Country: US (occurrence: US)
  Receive Date: 20200519
  Receipt Date: 20210610
  Transmission Date: 20210716
  Serious: No
  Sender: FDA-Public Use
  Company Number: US-SA-2020SA128019

PATIENT
  Age: 61 Year
  Sex: Female

DRUGS (2)
  1. CROMOLYN SOD [Concomitant]
     Active Substance: CROMOLYN SODIUM
  2. DUPIXENT [Suspect]
     Active Substance: DUPILUMAB
     Indication: DERMATITIS ATOPIC
     Dosage: 300 MG, QOW
     Route: 058
     Dates: start: 20200523, end: 202012

REACTIONS (4)
  - Dermatitis atopic [Not Recovered/Not Resolved]
  - Sleep disorder [Not Recovered/Not Resolved]
  - Discomfort [Not Recovered/Not Resolved]
  - Rash [Not Recovered/Not Resolved]

NARRATIVE: CASE EVENT DATE: 202012
